FAERS Safety Report 14039920 (Version 1)
Quarter: 2017Q4

REPORT INFORMATION
  Report Type: Spontaneous
  Country: US (occurrence: US)
  Receive Date: 20171004
  Receipt Date: 20171004
  Transmission Date: 20180321
  Serious: Yes (Other)
  Sender: FDA-Public Use
  Company Number: PHHY2017US144102

PATIENT

DRUGS (6)
  1. TIGECYCLINE. [Concomitant]
     Active Substance: TIGECYCLINE
     Indication: RESPIRATORY TRACT INFECTION
  2. MEROPENEM. [Suspect]
     Active Substance: MEROPENEM
     Indication: RESPIRATORY TRACT INFECTION
     Route: 065
  3. MEROPENEM. [Suspect]
     Active Substance: MEROPENEM
     Indication: PNEUMONIA
  4. TIGECYCLINE. [Concomitant]
     Active Substance: TIGECYCLINE
     Indication: PNEUMONIA
     Route: 065
  5. COLISTIN [Concomitant]
     Active Substance: COLISTIN
     Indication: RESPIRATORY TRACT INFECTION
     Route: 065
  6. COLISTIN [Concomitant]
     Active Substance: COLISTIN
     Indication: PNEUMONIA

REACTIONS (1)
  - Drug resistance [Unknown]
